FAERS Safety Report 6706184-4 (Version None)
Quarter: 2010Q2

REPORT INFORMATION
  Report Type: 
  Country: None (occurrence: None)
  Receive Date: 20100430
  Receipt Date: 20100430
  Transmission Date: 20101027
  Serious: No
  Sender: FDA-Public Use
  Company Number: None

PATIENT
  Age: 65 Year
  Sex: Male
  Weight: 65.3 kg

DRUGS (1)
  1. CIPROFLOXACIN [Suspect]
     Indication: INFECTION
     Dosage: 400 MG ONCE IV
     Route: 042
     Dates: start: 20100307, end: 20100307

REACTIONS (4)
  - BURNING SENSATION [None]
  - ERYTHEMA MULTIFORME [None]
  - INFUSION SITE ERYTHEMA [None]
  - INFUSION SITE PAIN [None]
